FAERS Safety Report 23161933 (Version 2)
Quarter: 2023Q4

REPORT INFORMATION
  Report Type: Spontaneous
  Country: JP (occurrence: JP)
  Receive Date: 20231109
  Receipt Date: 20231129
  Transmission Date: 20240110
  Serious: Yes (Other)
  Sender: FDA-Public Use
  Company Number: JP-SAKK-2023SA339750AA

PATIENT
  Age: 70 Year
  Sex: Male

DRUGS (2)
  1. DUPIXENT [Suspect]
     Active Substance: DUPILUMAB
     Indication: Dermatitis atopic
     Dosage: 300 MG, QOW
     Route: 058
     Dates: start: 20230726, end: 20231101
  2. HERBALS [Concomitant]
     Active Substance: HERBALS
     Indication: Neurodermatitis
     Dosage: UNK
     Route: 065
     Dates: start: 20230207

REACTIONS (4)
  - Diabetes mellitus [Unknown]
  - Oedema peripheral [Unknown]
  - Face oedema [Unknown]
  - Skin ulcer [Not Recovered/Not Resolved]

NARRATIVE: CASE EVENT DATE: 20231101
